FAERS Safety Report 13451943 (Version 1)
Quarter: 2017Q2

REPORT INFORMATION
  Report Type: Spontaneous
  Country: US (occurrence: US)
  Receive Date: 20170417
  Receipt Date: 20170417
  Transmission Date: 20170830
  Serious: Yes (Other)
  Sender: FDA-Public Use
  Company Number: None

PATIENT
  Age: 79 Year
  Sex: Female

DRUGS (1)
  1. AMPYRA [Suspect]
     Active Substance: DALFAMPRIDINE
     Indication: MULTIPLE SCLEROSIS
     Route: 048
     Dates: start: 20170321

REACTIONS (5)
  - Laboratory test abnormal [None]
  - Urinary tract infection [None]
  - Dizziness [None]
  - Asthenia [None]
  - Presyncope [None]

NARRATIVE: CASE EVENT DATE: 20170416
